FAERS Safety Report 6462112-0 (Version None)
Quarter: 2009Q4

REPORT INFORMATION
  Report Type: 
  Country: None (occurrence: None)
  Receive Date: 20091130
  Receipt Date: 20091120
  Transmission Date: 20100525
  Serious: Yes (Disabling)
  Sender: FDA-Public Use
  Company Number: GXKR2009US12682

PATIENT
  Age: 55 Year
  Sex: Male

DRUGS (2)
  1. RIBAVIRIN (NGX) [Suspect]
     Indication: HEPATITIS C
     Dosage: 1000 MG/DAY IN DIVIDED DOSES
     Route: 065
  2. PEGINTERFERON ALFA-2A [Suspect]
     Indication: HEPATITIS C
     Dosage: 180 UG/ML/WEEK IN DIVIDED DOSES
     Route: 065

REACTIONS (13)
  - AGEUSIA [None]
  - BACK PAIN [None]
  - DIPLEGIA [None]
  - EATING DISORDER [None]
  - FACIAL PALSY [None]
  - FACIAL PARESIS [None]
  - GUILLAIN-BARRE SYNDROME [None]
  - HEAD DEFORMITY [None]
  - HYPOAESTHESIA FACIAL [None]
  - HYPOREFLEXIA [None]
  - MUSCULAR WEAKNESS [None]
  - NEURALGIA [None]
  - WHEELCHAIR USER [None]
